FAERS Safety Report 8287361-0 (Version None)
Quarter: 2012Q2

REPORT INFORMATION
  Report Type: 
  Country: None (occurrence: None)
  Receive Date: 20120410
  Receipt Date: 20120410
  Transmission Date: 20120825
  Serious: No
  Sender: FDA-Public Use
  Company Number: None

PATIENT
  Age: 91 Year
  Sex: Female
  Weight: 72.5755 kg

DRUGS (2)
  1. TIKOSYN [Suspect]
     Indication: CARDIAC PACEMAKER INSERTION
     Dosage: 25 MG 2 X A DAY
     Dates: start: 20101204
  2. TIKOSYN [Suspect]
     Indication: ATRIAL FIBRILLATION
     Dosage: 25 MG 2 X A DAY
     Dates: start: 20101204

REACTIONS (6)
  - STRESS FRACTURE [None]
  - ACROCHORDON [None]
  - HERPES ZOSTER [None]
  - DIZZINESS [None]
  - LOWER LIMB FRACTURE [None]
  - FOOT FRACTURE [None]
